FAERS Safety Report 21386431 (Version 1)
Quarter: 2022Q3

REPORT INFORMATION
  Report Type: Spontaneous
  Country: US (occurrence: US)
  Receive Date: 20220928
  Receipt Date: 20220928
  Transmission Date: 20221027
  Serious: No
  Sender: FDA-Public Use
  Company Number: US-BAYER-2022A130229

PATIENT
  Sex: Male

DRUGS (1)
  1. LOTRIMIN ULTRA ATHLETES FOOT [Suspect]
     Active Substance: BUTENAFINE HYDROCHLORIDE
     Indication: Product used for unknown indication
     Route: 061

REACTIONS (1)
  - Skin burning sensation [Unknown]
